FAERS Safety Report 9067363 (Version 1)
Quarter: 2013Q1

REPORT INFORMATION
  Report Type: Report from Study
  Country: US (occurrence: US)
  Receive Date: 20130128
  Receipt Date: 20130128
  Transmission Date: 20140127
  Serious: No
  Sender: FDA-Public Use
  Company Number: US-ABBOTT-11P-163-0871983-00

PATIENT
  Age: 29 Year
  Sex: Male

DRUGS (5)
  1. HUMIRA 40 MG/0.8 ML PEN [Suspect]
     Indication: PSORIATIC ARTHROPATHY
     Dates: start: 20110924
  2. HUMIRA 40 MG/0.8 ML PEN [Suspect]
  3. OXYCODONE [Concomitant]
     Indication: PAIN
     Dosage: PRN
  4. INDOMETHACIN [Concomitant]
     Indication: PAIN
  5. HYDROCORTISONE [Concomitant]
     Indication: PSORIASIS
     Dosage: 0.2% BID

REACTIONS (1)
  - Injection site pain [Recovering/Resolving]
